FAERS Safety Report 6429814-3 (Version None)
Quarter: 2009Q4

REPORT INFORMATION
  Report Type: 
  Country: None (occurrence: None)
  Receive Date: 20091104
  Receipt Date: 20091104
  Transmission Date: 20100525
  Serious: Yes (Hospitalization)
  Sender: FDA-Public Use
  Company Number: None

PATIENT
  Sex: Male
  Weight: 83.9154 kg

DRUGS (6)
  1. ROTIGOTINE [Suspect]
     Indication: RESTLESS LEGS SYNDROME
     Dosage: (4 MG QD TOPICAL), (4 MG QD TOPICAL)
     Route: 061
     Dates: start: 20090723, end: 20090725
  2. ROTIGOTINE [Suspect]
     Indication: RESTLESS LEGS SYNDROME
     Dosage: (4 MG QD TOPICAL), (4 MG QD TOPICAL)
     Route: 061
     Dates: start: 20090725
  3. CELEXA [Concomitant]
  4. KLONOPIN [Concomitant]
  5. MULTI-VITAMIN [Concomitant]
  6. TESTOSTERONE [Concomitant]

REACTIONS (11)
  - ASCITES [None]
  - ATELECTASIS [None]
  - CHOLELITHIASIS [None]
  - DIALYSIS [None]
  - HEPATIC ENZYME INCREASED [None]
  - ILEUS [None]
  - JAUNDICE [None]
  - PANCREATIC ENZYMES INCREASED [None]
  - PANCREATITIS [None]
  - PLEURAL EFFUSION [None]
  - RENAL FAILURE ACUTE [None]
